FAERS Safety Report 6769453-8 (Version None)
Quarter: 2010Q2

REPORT INFORMATION
  Report Type: 
  Country: None (occurrence: None)
  Receive Date: 20100615
  Receipt Date: 20100610
  Transmission Date: 20101027
  Serious: Yes (Hospitalization)
  Sender: FDA-Public Use
  Company Number: CA-BRISTOL-MYERS SQUIBB COMPANY-14669261

PATIENT
  Age: 47 Year
  Sex: Female
  Weight: 92 kg

DRUGS (9)
  1. REYATAZ [Suspect]
     Indication: HIV INFECTION
     Route: 048
     Dates: start: 20080820, end: 20081006
  2. ABACAVIR SULFATE/LAMIVUDINE [Suspect]
     Indication: HIV INFECTION
     Dosage: 1 DF=600/300MG
  3. EFFEXOR [Concomitant]
     Dosage: EXTENDED-RELEASE VENLAFAXINE
  4. ISONIAZID [Concomitant]
     Indication: TUBERCULOSIS
     Dates: start: 20071201, end: 20081201
  5. AMITRIPTYLINE HCL [Concomitant]
     Dosage: 40 MG AT BEDTIME
  6. MULTI-VITAMIN [Concomitant]
  7. CALCIUM CARBONATE [Concomitant]
  8. VITAMIN D [Concomitant]
  9. VITAMIN E [Concomitant]

REACTIONS (4)
  - BILE DUCT STONE [None]
  - CHOLECYSTITIS ACUTE [None]
  - CHOLELITHIASIS [None]
  - HEPATITIS CHOLESTATIC [None]
